FAERS Safety Report 9155530 (Version 1)
Quarter: 2013Q1

REPORT INFORMATION
  Report Type: Spontaneous
  Country: US (occurrence: US)
  Receive Date: 20130311
  Receipt Date: 20130311
  Transmission Date: 20140127
  Serious: Yes (Other)
  Sender: FDA-Public Use
  Company Number: US-BAYER-2013-028421

PATIENT
  Age: 42 Year
  Sex: Female
  Weight: 83.9 kg

DRUGS (24)
  1. YASMIN [Suspect]
  2. YAZ [Suspect]
  3. OCELLA [Suspect]
  4. DRYSOL [Concomitant]
     Dosage: 20 %, UNK
     Dates: start: 20110114
  5. CLARITIN [Concomitant]
     Dosage: 10 MG, UNK
     Dates: start: 20110114
  6. FAMVIR [FAMCICLOVIR] [Concomitant]
     Dosage: 125 MG, UNK
     Dates: start: 20110114
  7. NEXIUM [Concomitant]
     Dosage: 40 MG, UNK
     Dates: start: 20110114
  8. NAPROXEN [Concomitant]
     Dosage: 375 MG, UNK
     Dates: start: 20110114
  9. MIRALAX [Concomitant]
     Dosage: UNK
     Dates: start: 20110114
  10. FERROUS GLUCONATE [Concomitant]
     Dosage: 324 MG, UNK
     Dates: start: 20110114
  11. FLUCONAZOLE [Concomitant]
     Dosage: 150 MG, UNK
     Dates: start: 20110114
  12. PHENYLEPHRINE [Concomitant]
     Dosage: 0.5 %, UNK
     Dates: start: 20110114
  13. KEFLEX [Concomitant]
     Dosage: 500 MG, UNK
     Dates: start: 20110114
  14. LORTAB [Concomitant]
     Dosage: 7.5-500 MG
     Dates: start: 20110114
  15. PHENERGAN [Concomitant]
     Dosage: 6.25-15 MG/ML
     Dates: start: 20110114
  16. ALBUTEROL [Concomitant]
     Dosage: 90 MCG
     Dates: start: 20110114
  17. AMANTADINE [Concomitant]
     Dosage: 100 MG, UNK
     Dates: start: 20110114
  18. HYDROCORTISONE [Concomitant]
     Dosage: 2.5 %, UNK
     Route: 061
     Dates: start: 20110114
  19. AMLACTIN [Concomitant]
     Dosage: 12 %, UNK
     Dates: start: 20110114
  20. LIBRAX [Concomitant]
     Dosage: 2.5-5 MG
     Dates: start: 20110114
  21. FLEXERIL [Concomitant]
     Dosage: 10 MG, UNK
     Dates: start: 20110114
  22. MICONAZOLE [Concomitant]
     Dosage: 2 %, UNK
     Route: 067
     Dates: start: 20110114
  23. IBUPROFEN [Concomitant]
     Dosage: 800 MG, UNK
  24. TYLENOL [Concomitant]

REACTIONS (2)
  - Deep vein thrombosis [None]
  - Thrombosis [None]
